FAERS Safety Report 21740383 (Version 3)
Quarter: 2023Q1

REPORT INFORMATION
  Report Type: Report from Study
  Country: US (occurrence: US)
  Receive Date: 20221216
  Receipt Date: 20230318
  Transmission Date: 20230418
  Serious: Yes (Hospitalization)
  Sender: FDA-Public Use
  Company Number: US-TEVA-2022-US-2836129

PATIENT
  Age: 17 Year
  Sex: Male
  Weight: 98.7 kg

DRUGS (18)
  1. LEUCOVORIN [Suspect]
     Active Substance: LEUCOVORIN
     Indication: Acute lymphocytic leukaemia
     Dosage: 32 MILLIGRAM, 2-4 DAYS
     Route: 048
     Dates: start: 20220303, end: 20220415
  2. METHOTREXATE [Suspect]
     Active Substance: METHOTREXATE
     Indication: Acute lymphocytic leukaemia
     Dosage: 15 MILLIGRAM ONCE
     Route: 037
     Dates: start: 20211220, end: 20221102
  3. VINCRISTINE [Suspect]
     Active Substance: VINCRISTINE
     Indication: Acute lymphocytic leukaemia
     Dosage: 2 MILLIGRAM ONCE
     Route: 042
     Dates: start: 20220103, end: 20221102
  4. DOXORUBICIN [Suspect]
     Active Substance: DOXORUBICIN
     Indication: Acute lymphocytic leukaemia
     Dosage: 54 MILLIGRAM ONCE A WEEK;
     Route: 042
     Dates: start: 20220504, end: 20220518
  5. PREDNISONE [Suspect]
     Active Substance: PREDNISONE
     Indication: Acute lymphocytic leukaemia
     Dosage: 85 MILLIGRAM DAILY;
     Route: 048
     Dates: start: 20221102, end: 20221102
  6. RUXOLITINIB [Suspect]
     Active Substance: RUXOLITINIB
     Indication: Acute lymphocytic leukaemia
     Dosage: 100 MILLIGRAM DAILY;
     Route: 048
     Dates: start: 20211220, end: 20221117
  7. CYCLOPHOSPHAMIDE [Suspect]
     Active Substance: CYCLOPHOSPHAMIDE
     Indication: Acute lymphocytic leukaemia
     Dosage: 2140 MILLIGRAM 30-60 MIN ONCE
     Route: 042
     Dates: start: 20211220, end: 20220613
  8. CYTARABINE [Suspect]
     Active Substance: CYTARABINE
     Indication: Acute lymphocytic leukaemia
     Dosage: 160 MILLIGRAM DAILY; 160 MILLIGRAM QD FOR 4 DAYS
     Route: 042
     Dates: start: 20211220, end: 20220623
  9. MERCAPTOPURINE [Suspect]
     Active Substance: MERCAPTOPURINE
     Indication: Acute lymphocytic leukaemia
     Dosage: 53.5 MILLIGRAM DAILY; 53.5 MILLIGRAM QD
     Route: 048
     Dates: start: 20211220, end: 20221128
  10. MERCAPTOPURINE [Suspect]
     Active Substance: MERCAPTOPURINE
     Dosage: 53.5 MILLIGRAM DAILY;
     Route: 048
     Dates: start: 20221207
  11. PEGASPARGASE [Suspect]
     Active Substance: PEGASPARGASE
     Indication: Acute lymphocytic leukaemia
     Dosage: IU/M2 ;5125 INTERNATIONAL UNIT ONCEI
     Route: 042
     Dates: start: 20220103, end: 20220103
  12. METHOTREXATE [Suspect]
     Active Substance: METHOTREXATE
     Indication: Acute lymphocytic leukaemia
     Dosage: 43.75 MILLIGRAM, 2 DAYS 1 EVEY 1 WEEK
     Route: 048
     Dates: start: 20221109, end: 20221123
  13. METHOTREXATE [Suspect]
     Active Substance: METHOTREXATE
     Dosage: 100 MILLIGRAM DAILY;
     Route: 048
     Dates: start: 20221207
  14. METHOTREXATE [Suspect]
     Active Substance: METHOTREXATE
     Route: 048
     Dates: start: 20221207
  15. DEXAMETHASONE [Suspect]
     Active Substance: DEXAMETHASONE
     Indication: Acute lymphocytic leukaemia
     Dosage: 21.5 MILLIGRAM DAILY;
     Route: 048
     Dates: start: 20220504, end: 20220520
  16. ASPARAGINASE [Suspect]
     Active Substance: ASPARAGINASE
     Indication: Acute lymphocytic leukaemia
     Dosage: 108 MILLIGRAM ONCE 2 DAYS
     Route: 042
     Dates: start: 20220131, end: 20220926
  17. METHOTREXATE [Suspect]
     Active Substance: METHOTREXATE
     Indication: Acute lymphocytic leukaemia
     Dosage: 10600 MILLIGRAM, 2 DAYS
     Route: 048
     Dates: start: 20220301, end: 20220412
  18. ACETAMINOPHEN [Concomitant]
     Active Substance: ACETAMINOPHEN
     Indication: Product used for unknown indication
     Dates: start: 20221127

REACTIONS (1)
  - Febrile neutropenia [Recovered/Resolved]

NARRATIVE: CASE EVENT DATE: 20221128
